FAERS Safety Report 5840457-2 (Version None)
Quarter: 2008Q3

REPORT INFORMATION
  Report Type: 
  Country: None (occurrence: None)
  Receive Date: 20080807
  Receipt Date: 20080807
  Transmission Date: 20090109
  Serious: Yes (Disabling)
  Sender: FDA-Public Use
  Company Number: None

PATIENT
  Sex: Male
  Weight: 56.246 kg

DRUGS (1)
  1. PREDNISONE [Suspect]
     Indication: GRAFT VERSUS HOST DISEASE
     Dates: start: 20061001, end: 20080201

REACTIONS (1)
  - OSTEONECROSIS [None]
